FAERS Safety Report 5270485-X (Version None)
Quarter: 2007Q1

REPORT INFORMATION
  Report Type: 
  Country: None (occurrence: None)
  Receive Date: 20070315
  Receipt Date: 19980310
  Transmission Date: 20070707
  Serious: Yes (Hospitalization)
  Sender: FDA-Public Use
  Company Number: STI-2007-00122

PATIENT
  Age: 24 Year
  Sex: Female

DRUGS (1)
  1. SODIUM SULFACETAMIDE 10% + SULFUR 5% [Suspect]
     Dosage: TOPICAL
     Route: 061
     Dates: start: 19970601, end: 19980303

REACTIONS (6)
  - DRUG HYPERSENSITIVITY [None]
  - DRUG TOXICITY [None]
  - NEURALGIA [None]
  - NEUROPATHY PERIPHERAL [None]
  - PAIN [None]
  - PARAESTHESIA [None]
